FAERS Safety Report 13936157 (Version 1)
Quarter: 2017Q3

REPORT INFORMATION
  Report Type: Spontaneous
  Country: BE (occurrence: BE)
  Receive Date: 20170905
  Receipt Date: 20170905
  Transmission Date: 20171127
  Serious: Yes (Hospitalization, Other)
  Sender: FDA-Public Use
  Company Number: BE-ASTRAZENECA-2017SE76054

PATIENT
  Sex: Female
  Weight: 62.2 kg

DRUGS (7)
  1. BYDUREON [Suspect]
     Active Substance: EXENATIDE
     Indication: TYPE 2 DIABETES MELLITUS
     Route: 058
     Dates: end: 20170702
  2. PARACETAMOL [Concomitant]
     Active Substance: ACETAMINOPHEN
     Dates: start: 2007
  3. ACTRAPID [Concomitant]
     Active Substance: INSULIN HUMAN
  4. CIPROFLOXACIN. [Concomitant]
     Active Substance: CIPROFLOXACIN
  5. DUPHALAC [Concomitant]
     Active Substance: LACTULOSE
  6. FRAXIPARINE [Concomitant]
     Active Substance: NADROPARIN CALCIUM
  7. CONTRAMAL [Concomitant]
     Active Substance: TRAMADOL HYDROCHLORIDE
     Dosage: AS REQUIRED

REACTIONS (2)
  - Jaundice [Unknown]
  - Pancreatitis acute [Recovered/Resolved]
